FAERS Safety Report 8458478-2 (Version None)
Quarter: 2012Q2

REPORT INFORMATION
  Report Type: 
  Country: None (occurrence: None)
  Receive Date: 20120615
  Receipt Date: 20120601
  Transmission Date: 20120825
  Serious: Yes (Death, Hospitalization)
  Sender: FDA-Public Use
  Company Number: 2012AP001686

PATIENT
  Age: 58 Year
  Sex: Male

DRUGS (1)
  1. AMIODARONE HYDROCHLORIDE [Suspect]
     Indication: CONGESTIVE CARDIOMYOPATHY
     Dosage: 400 MG;QD

REACTIONS (8)
  - INTERSTITIAL LUNG DISEASE [None]
  - FATIGUE [None]
  - LUNG DISORDER [None]
  - LYMPHOID TISSUE HYPERPLASIA [None]
  - PULMONARY TOXICITY [None]
  - COUGH [None]
  - EOSINOPHILIC PNEUMONIA [None]
  - BRADYCARDIA [None]
